FAERS Safety Report 6343670 (Version 3)
Quarter: 2016Q3

REPORT INFORMATION
  Report Type: Spontaneous
  Country: CA (occurrence: CA)
  Receive Date: 20070627
  Receipt Date: 20160718
  Transmission Date: 20161109
  Serious: Yes (Death)
  Sender: FDA-Public Use
  Company Number: CA-JNJFOC-20070604309

PATIENT
  Age: 39 Year
  Sex: Male
  Weight: 59 kg

DRUGS (8)
  1. CLAVULIN [Concomitant]
     Active Substance: AMOXICILLIN\CLAVULANIC ACID
  2. NOVOTETRA [Concomitant]
  3. IMOVANE [Concomitant]
     Active Substance: ZOPICLONE
  4. TYLENOL EXTRA STRENGTH [Suspect]
     Active Substance: ACETAMINOPHEN
     Indication: SUICIDE ATTEMPT
     Route: 048
  5. COLACE [Concomitant]
     Active Substance: DOCUSATE SODIUM
  6. BACLOFEN. [Concomitant]
     Active Substance: BACLOFEN
  7. SENOKOT [Concomitant]
     Active Substance: SENNOSIDES
  8. NOROXIN [Concomitant]
     Active Substance: NORFLOXACIN

REACTIONS (6)
  - Toxicity to various agents [Fatal]
  - Liver injury [Not Recovered/Not Resolved]
  - Intentional overdose [Fatal]
  - Pulmonary oedema [Fatal]
  - Pulmonary congestion [Fatal]
  - Completed suicide [Fatal]
